FAERS Safety Report 6472461-8 (Version None)
Quarter: 2009Q4

REPORT INFORMATION
  Report Type: 
  Country: None (occurrence: None)
  Receive Date: 20091201
  Receipt Date: 20091116
  Transmission Date: 20100525
  Serious: Yes (Hospitalization)
  Sender: FDA-Public Use
  Company Number: 2009-4690

PATIENT
  Sex: Male

DRUGS (1)
  1. APOKYN [Suspect]
     Indication: PARKINSON'S DISEASE
     Dosage: 3 ML

REACTIONS (4)
  - CEREBROVASCULAR ACCIDENT [None]
  - IATROGENIC INJURY [None]
  - PROCEDURAL COMPLICATION [None]
  - VASCULAR INJURY [None]
